FAERS Safety Report 8376425-9 (Version None)
Quarter: 2012Q2

REPORT INFORMATION
  Report Type: 
  Country: None (occurrence: None)
  Receive Date: 20120522
  Receipt Date: 20120515
  Transmission Date: 20120825
  Serious: Yes (Hospitalization, Other)
  Sender: FDA-Public Use
  Company Number: PHHY2011AU116326

PATIENT
  Sex: Female

DRUGS (30)
  1. ZOLEDRONOC ACID [Suspect]
     Dosage: 5 MG, UNK
     Route: 042
     Dates: start: 20100427
  2. CLARITHROMYCIN [Concomitant]
     Dosage: 250 MG TABLET, 1 DAILY WITH MEALS
     Route: 048
  3. RHINOCORT [Concomitant]
     Dosage: 64 UG/DOSE, 2 SPRAYS TWICE A DAY
  4. SERETIDE MDI [Concomitant]
     Dosage: 1 DF TWICE A DAY
  5. SINGULAIR [Concomitant]
     Dosage: 10 MG, TABLET, 1 DAILY AS DIRECTED
     Route: 048
  6. SLOW-K [Concomitant]
     Dosage: 600 MG, TABLET, 2 DAILY
     Route: 048
  7. INFLUVAC [Concomitant]
     Dates: start: 20100421
  8. DABIGATRAN [Concomitant]
     Dosage: 110 MG, 1 TWICE A DAY
  9. ATACAND [Concomitant]
     Dosage: 4 MG TABLET, 1 DAILY
     Route: 048
  10. LANOXIN [Concomitant]
     Dosage: 62.5 UG TABLET, 1 IN THE MORNING
     Route: 048
  11. LASIX [Concomitant]
     Dosage: 40 MG TABLET, 1 IN THE MORNING
     Route: 048
  12. POLY-TEARS [Concomitant]
     Dosage: 0.3-0.1%, 4 TIMES A DAY AS DIRECTED
  13. SPIRIVA [Concomitant]
     Dosage: 18 UG, 1 DAILY AS DIRECTED
  14. FLUVAX [Concomitant]
     Dates: start: 20060308
  15. FLUVAX [Concomitant]
     Dates: start: 20080311
  16. FLUVAX [Concomitant]
     Dates: start: 20110328
  17. VAXIGRIP [Concomitant]
     Dates: start: 20120403
  18. SIMVASTATIN [Concomitant]
     Dosage: 10 MG TABLET, 1 BEFORE BED
     Route: 048
  19. OSMOTICALLY ACTING LAXATIVES/OSMOLAX [Concomitant]
     Dosage: 1 SCOOP DAILY, AS DIRECTED.
  20. PROGOUT [Concomitant]
     Dosage: 100 MG, TABLET, 1 DAILY AS DIRECTED
     Route: 048
  21. VENTOLIN DISKUS [Concomitant]
     Dosage: 100 UG/DOSE, 2 PUFFS EVERY 4 HOURS
  22. FLUVAX [Concomitant]
     Dates: start: 20090325
  23. ZOLEDRONOC ACID [Suspect]
     Dosage: 5 MG, UNK
     Route: 042
     Dates: start: 20110825
  24. OSTELIN [Concomitant]
     Dosage: 1000 IU, 1 DAILY AS DIRECTED
  25. XALATAN [Concomitant]
     Dosage: 50 UG/ML, 2 DROPS BEFORE BED
  26. FLUVAX [Concomitant]
     Dates: start: 20120323
  27. VENTOLIN NEBULES PF [Concomitant]
     Dosage: 5 MG/2.5 ML, EVERY 6 HRS
  28. PANVAX H1N1 [Concomitant]
     Dates: start: 20100303
  29. ZOLEDRONOC ACID [Suspect]
     Dosage: 5 MG, UNK
     Route: 042
     Dates: start: 20090401
  30. ACETAMINOPHEN [Concomitant]
     Dosage: 665 MG TABLET, 2 THREE TIMES PER DAY AS DIRECTED.
     Route: 048

REACTIONS (3)
  - INFLUENZA [None]
  - VIRAL UPPER RESPIRATORY TRACT INFECTION [None]
  - LOWER RESPIRATORY TRACT INFECTION [None]
